FAERS Safety Report 8578212 (Version 2)
Quarter: 2014Q2

REPORT INFORMATION
  Report Type: Spontaneous
  Country: US (occurrence: US)
  Receive Date: 20120524
  Receipt Date: 20140404
  Transmission Date: 20141212
  Serious: Yes (Hospitalization)
  Sender: FDA-Public Use
  Company Number: US-JNJFOC-20120514108

PATIENT
  Age: 56 Year
  Sex: Female
  Weight: 48.2 kg

DRUGS (24)
  1. IBUPROFEN [Suspect]
     Indication: BACK PAIN
     Dosage: AS NEEDED
     Route: 048
     Dates: start: 198009
  2. BLINDED STUDY MEDICATION [Suspect]
     Indication: PSORIASIS
     Route: 048
     Dates: start: 20110811, end: 20120809
  3. BLINDED STUDY MEDICATION [Suspect]
     Indication: PSORIASIS
     Route: 048
  4. ALEVE [Suspect]
     Indication: PSORIATIC ARTHROPATHY
     Route: 048
     Dates: start: 200410
  5. PLACEBO [Suspect]
     Indication: PSORIASIS
     Route: 048
  6. PLACEBO [Suspect]
     Indication: PSORIASIS
     Route: 048
     Dates: start: 20110811
  7. UNKNOWN MEDICATION [Suspect]
     Indication: PSORIASIS
     Route: 048
  8. UNKNOWN MEDICATION [Suspect]
     Indication: PSORIASIS
     Route: 048
     Dates: start: 20110811
  9. FOLIC ACID [Concomitant]
     Indication: NUTRITIONAL SUPPLEMENTATION
     Route: 048
     Dates: start: 198506
  10. IODINE [Concomitant]
     Indication: NUTRITIONAL SUPPLEMENTATION
     Route: 048
     Dates: start: 201103
  11. FISH OIL [Concomitant]
     Indication: NUTRITIONAL SUPPLEMENTATION
     Route: 048
     Dates: start: 200910
  12. COQ10 [Concomitant]
     Indication: NUTRITIONAL SUPPLEMENTATION
     Route: 048
     Dates: start: 200904
  13. VITAMIN B12 [Concomitant]
     Indication: NUTRITIONAL SUPPLEMENTATION
     Route: 048
     Dates: start: 200702
  14. VITAMIN C [Concomitant]
     Indication: NUTRITIONAL SUPPLEMENTATION
     Route: 048
     Dates: start: 198506
  15. VITAMIN B6 [Concomitant]
     Indication: NUTRITIONAL SUPPLEMENTATION
     Route: 048
     Dates: start: 198506
  16. KELP [Concomitant]
     Indication: NUTRITIONAL SUPPLEMENTATION
     Route: 048
     Dates: start: 201103
  17. PROBIOTICS [Concomitant]
     Indication: NUTRITIONAL SUPPLEMENTATION
     Route: 048
     Dates: start: 200811
  18. BIOTIN [Concomitant]
     Indication: NUTRITIONAL SUPPLEMENTATION
     Route: 048
     Dates: start: 200901
  19. VITAMIN D [Concomitant]
     Indication: NUTRITIONAL SUPPLEMENTATION
     Route: 048
     Dates: start: 200901
  20. RED YEAST RICE EXTRACT [Concomitant]
     Indication: NUTRITIONAL SUPPLEMENTATION
     Route: 048
     Dates: start: 201006
  21. NIASPAN [Concomitant]
     Indication: LIPID METABOLISM DISORDER
     Route: 048
     Dates: start: 20111013
  22. DIGESTIVE ENZYMES [Concomitant]
     Indication: NUTRITIONAL SUPPLEMENTATION
     Route: 048
     Dates: start: 201103
  23. BIOIDENTICAL HORMONE [Concomitant]
     Indication: HORMONE REPLACEMENT THERAPY
     Route: 061
     Dates: start: 20111020
  24. UNKNOWN MEDICATION [Concomitant]
     Indication: NUTRITIONAL SUPPLEMENTATION
     Route: 048
     Dates: start: 20111020

REACTIONS (7)
  - Oesophageal ulcer [Recovered/Resolved]
  - Diarrhoea haemorrhagic [Unknown]
  - Ulcer haemorrhage [Unknown]
  - Hiatus hernia [Unknown]
  - Duodenitis [Unknown]
  - Anaemia [Unknown]
  - Chronic gastritis [Unknown]
